FAERS Safety Report 4309454-2 (Version None)
Quarter: 2004Q1

REPORT INFORMATION
  Report Type: 
  Country: None (occurrence: None)
  Receive Date: 20040301
  Receipt Date: 20040216
  Transmission Date: 20041129
  Serious: Yes (Other)
  Sender: FDA-Public Use
  Company Number: B0316792A

PATIENT
  Age: 80 Year
  Sex: Male

DRUGS (2)
  1. DIGOXIN [Suspect]
     Dosage: YEARS
  2. HYPERICUM (FORMULATION UNKNOWN) (HYPERICUM) [Suspect]
     Indication: DEPRESSION
     Dosage: 2000 ML, PER DAY, ORAL
     Route: 048

REACTIONS (8)
  - ABDOMINAL PAIN UPPER [None]
  - DIZZINESS [None]
  - DRUG INTERACTION [None]
  - HEADACHE [None]
  - NAUSEA [None]
  - SINUS BRADYCARDIA [None]
  - THERAPEUTIC AGENT TOXICITY [None]
  - VENTRICULAR EXTRASYSTOLES [None]
